FAERS Safety Report 13578631 (Version 1)
Quarter: 2017Q2

REPORT INFORMATION
  Report Type: Spontaneous
  Country: BR (occurrence: BR)
  Receive Date: 20170524
  Receipt Date: 20170524
  Transmission Date: 20170830
  Serious: Yes (Other)
  Sender: FDA-Public Use
  Company Number: BR-009507513-1705BRA011190

PATIENT
  Sex: Female

DRUGS (1)
  1. MERCILON  CONTI [Suspect]
     Active Substance: DESOGESTREL\ETHINYL ESTRADIOL
     Dosage: UNK
     Route: 048

REACTIONS (3)
  - Abnormal withdrawal bleeding [Recovered/Resolved]
  - Withdrawal bleed [Unknown]
  - Rhinoplasty [Unknown]

NARRATIVE: CASE EVENT DATE: 2017
